FAERS Safety Report 25935809 (Version 1)
Quarter: 2025Q4

REPORT INFORMATION
  Report Type: Spontaneous
  Country: US (occurrence: US)
  Receive Date: 20251017
  Receipt Date: 20251017
  Transmission Date: 20260118
  Serious: No
  Sender: Kenvue
  Company Number: US-KENVUE-20251004628

PATIENT
  Sex: Female

DRUGS (1)
  1. TYLENOL [Suspect]
     Active Substance: ACETAMINOPHEN
     Indication: Product used for unknown indication
     Dosage: TOOK TOO MUCH TYLENOL
     Route: 065
     Dates: start: 2001

REACTIONS (2)
  - Exposure during pregnancy [Unknown]
  - Product use issue [Unknown]

NARRATIVE: CASE EVENT DATE: 20010101
